FAERS Safety Report 25879075 (Version 1)
Quarter: 2025Q4

REPORT INFORMATION
  Report Type: Spontaneous
  Country: US (occurrence: US)
  Receive Date: 20251003
  Receipt Date: 20251003
  Transmission Date: 20260118
  Serious: No
  Sender: BIOGEN
  Company Number: US-BIOGEN-2025BI01323088

PATIENT
  Sex: Female

DRUGS (2)
  1. TYSABRI [Suspect]
     Active Substance: NATALIZUMAB
     Indication: Product used for unknown indication
     Route: 050
     Dates: start: 20161221, end: 20250703
  2. TYSABRI [Suspect]
     Active Substance: NATALIZUMAB
     Dosage: PAST REGIMEN
     Route: 050
     Dates: start: 20161221

REACTIONS (4)
  - Product dose omission issue [Unknown]
  - Muscular weakness [Unknown]
  - Gait inability [Unknown]
  - Fatigue [Unknown]
